FAERS Safety Report 19613956 (Version 3)
Quarter: 2021Q4

REPORT INFORMATION
  Report Type: Other
  Country: NL (occurrence: NL)
  Receive Date: 20210727
  Receipt Date: 20211213
  Transmission Date: 20220303
  Serious: Yes (Other)
  Sender: FDA-Public Use
  Company Number: NL-MERCK HEALTHCARE KGAA-9233340

PATIENT
  Age: 55 Year
  Sex: Female

DRUGS (9)
  1. IBUPROFEN [Suspect]
     Active Substance: IBUPROFEN
     Indication: Product used for unknown indication
     Dosage: UNK
     Route: 065
  2. AMITRIPTYLINE [Suspect]
     Active Substance: AMITRIPTYLINE
     Indication: Sleep disorder
     Dosage: 100 MILLIGRAM
     Route: 065
  3. ACETAMINOPHEN [Suspect]
     Active Substance: ACETAMINOPHEN
     Indication: Product used for unknown indication
     Dosage: UNK
     Route: 065
  4. REBIF [Suspect]
     Active Substance: INTERFERON BETA-1A
     Indication: Relapsing-remitting multiple sclerosis
     Dosage: 22 MICROGRAM 0.33 PER WEEK (REBIF DISPOSABLE NEEDLES)
     Route: 058
     Dates: start: 2000, end: 2018
  5. REBIF [Suspect]
     Active Substance: INTERFERON BETA-1A
     Dosage: 8.8 MICROGRAM 0.33 PER WEEK (RESTARTED) INJECTION
     Route: 058
  6. REBIF [Suspect]
     Active Substance: INTERFERON BETA-1A
     Dosage: 44 MIGRAM 0.33 PER WEEK
     Route: 058
     Dates: start: 2021
  7. REBIF [Suspect]
     Active Substance: INTERFERON BETA-1A
     Dosage: 44 MIGRAM 0.33 PER WEEK
     Route: 058
     Dates: start: 2021
  8. REBIF [Suspect]
     Active Substance: INTERFERON BETA-1A
     Dosage: UNK
     Route: 065
  9. MAXALT [Concomitant]
     Active Substance: RIZATRIPTAN BENZOATE
     Indication: Product used for unknown indication
     Dosage: UNK
     Route: 065

REACTIONS (10)
  - Multiple sclerosis [Unknown]
  - Poor quality sleep [Unknown]
  - Gait disturbance [Unknown]
  - Muscle spasms [Unknown]
  - Arthralgia [Not Recovered/Not Resolved]
  - Rheumatic disorder [Unknown]
  - Myalgia [Not Recovered/Not Resolved]
  - Adverse reaction [Recovered/Resolved]
  - Influenza like illness [Not Recovered/Not Resolved]
  - Off label use [Unknown]
